FAERS Safety Report 17167351 (Version 4)
Quarter: 2020Q1

REPORT INFORMATION
  Report Type: Spontaneous
  Country: EG (occurrence: EG)
  Receive Date: 20191218
  Receipt Date: 20200224
  Transmission Date: 20200409
  Serious: Yes (Hospitalization)
  Sender: FDA-Public Use
  Company Number: EG-ROCHE-2496476

PATIENT
  Sex: Female

DRUGS (1)
  1. OCREVUS [Suspect]
     Active Substance: OCRELIZUMAB
     Indication: MULTIPLE SCLEROSIS
     Route: 042
     Dates: start: 20190724

REACTIONS (5)
  - Abscess [Recovered/Resolved]
  - Drug ineffective [Unknown]
  - Immunodeficiency [Recovering/Resolving]
  - Multiple sclerosis [Not Recovered/Not Resolved]
  - Enuresis [Not Recovered/Not Resolved]

NARRATIVE: CASE EVENT DATE: 20190905
